FAERS Safety Report 15556907 (Version 3)
Quarter: 2019Q1

REPORT INFORMATION
  Report Type: Report from Study
  Country: US (occurrence: US)
  Receive Date: 20181026
  Receipt Date: 20190227
  Transmission Date: 20190417
  Serious: No
  Sender: FDA-Public Use
  Company Number: PHEH2018US044870

PATIENT
  Sex: Female

DRUGS (2)
  1. COSENTYX [Suspect]
     Active Substance: SECUKINUMAB
     Indication: PSORIATIC ARTHROPATHY
     Dosage: 300 MG, QMO
     Route: 058
  2. COSENTYX [Suspect]
     Active Substance: SECUKINUMAB
     Indication: PSORIASIS
     Dosage: 150 MG, QMO
     Route: 058

REACTIONS (7)
  - Chest pain [Unknown]
  - Dry skin [Unknown]
  - Cardiac disorder [Unknown]
  - Bronchitis [Unknown]
  - Malaise [Unknown]
  - Drug effect incomplete [Unknown]
  - Dyspnoea [Unknown]
